FAERS Safety Report 23601315 (Version 3)
Quarter: 2024Q4

REPORT INFORMATION
  Report Type: Report from Study
  Country: GB (occurrence: GB)
  Receive Date: 20240306
  Receipt Date: 20241023
  Transmission Date: 20250114
  Serious: Yes (Hospitalization, Other)
  Sender: NOVARTIS
  Company Number: GB-002147023-NVSC2024GB047355

PATIENT
  Sex: Female

DRUGS (1)
  1. COSENTYX [Suspect]
     Active Substance: SECUKINUMAB
     Indication: Rheumatoid arthritis
     Dosage: 300 MG, QMO
     Route: 058

REACTIONS (6)
  - Lower respiratory tract infection [Recovering/Resolving]
  - Pneumonitis [Unknown]
  - Pain [Not Recovered/Not Resolved]
  - Swelling [Unknown]
  - Dysphonia [Unknown]
  - Product use in unapproved indication [Unknown]
